FAERS Safety Report 9455521 (Version 2)
Quarter: 2013Q3

REPORT INFORMATION
  Report Type: Spontaneous
  Country: US (occurrence: US)
  Receive Date: 20130813
  Receipt Date: 20130925
  Transmission Date: 20140515
  Serious: No
  Sender: FDA-Public Use
  Company Number: US-PFIZER INC-2013230621

PATIENT
  Age: 72 Year
  Sex: Male

DRUGS (4)
  1. PROCARDIA [Suspect]
     Dosage: UNK
  2. TRANZINE [Suspect]
     Dosage: 40 MG, UNK
  3. LISINOPRIL W/HYDROCHLOROTHIAZIDE [Concomitant]
     Indication: HYPERTENSION
     Dosage: 20 MG/12.5 MG, 1X/DAY
  4. ATORVASTATIN [Concomitant]
     Indication: HYPERLIPIDAEMIA
     Dosage: 40 MG, 1X/DAY (QHS)

REACTIONS (2)
  - Palpitations [Unknown]
  - Blood pressure abnormal [Unknown]
